FAERS Safety Report 10216095 (Version 3)
Quarter: 2014Q3

REPORT INFORMATION
  Report Type: Spontaneous
  Country: US (occurrence: US)
  Receive Date: 20140604
  Receipt Date: 20140903
  Transmission Date: 20150326
  Serious: Yes (Other)
  Sender: FDA-Public Use
  Company Number: US-BAYER-2014-082989

PATIENT
  Age: 26 Year
  Sex: Female
  Weight: 65.76 kg

DRUGS (6)
  1. TRAMADOL HYDROCHLORIDE. [Concomitant]
     Active Substance: TRAMADOL HYDROCHLORIDE
  2. XANAX [Concomitant]
     Active Substance: ALPRAZOLAM
  3. YASMIN [Suspect]
     Active Substance: DROSPIRENONE\ETHINYL ESTRADIOL
     Indication: PREMENSTRUAL SYNDROME
     Dosage: UNK
     Dates: start: 2000, end: 2004
  4. ESTRADIOL [ESTRADIOL] [Concomitant]
  5. ADVAIR HFA [Concomitant]
     Active Substance: FLUTICASONE PROPIONATE\SALMETEROL XINAFOATE
  6. MOBIC [Concomitant]
     Active Substance: MELOXICAM

REACTIONS (6)
  - Pain [None]
  - Injury [None]
  - Muscle spasms [None]
  - General physical health deterioration [None]
  - Deep vein thrombosis [None]
  - Weight increased [None]

NARRATIVE: CASE EVENT DATE: 2001
